FAERS Safety Report 22528599 (Version 1)
Quarter: 2023Q2

REPORT INFORMATION
  Report Type: Spontaneous
  Country: CA (occurrence: CA)
  Receive Date: 20230607
  Receipt Date: 20230607
  Transmission Date: 20230722
  Serious: Yes (Other)
  Sender: FDA-Public Use
  Company Number: CA-AUROBINDO-AUR-APL-2023-040320

PATIENT
  Sex: Female
  Weight: 56.246 kg

DRUGS (5)
  1. DULOXETINE [Suspect]
     Active Substance: DULOXETINE
     Indication: Anxiety
     Dosage: 1 MILLIGRAM
     Route: 065
  2. DULOXETINE [Suspect]
     Active Substance: DULOXETINE
     Dosage: 180 MILLIGRAM
     Route: 065
  3. DULOXETINE [Suspect]
     Active Substance: DULOXETINE
     Dosage: 2 MILLIGRAM
     Route: 065
  4. DULOXETINE [Suspect]
     Active Substance: DULOXETINE
     Dosage: 2 MILLIGRAM
     Route: 065
  5. LORAZEPAM [Concomitant]
     Active Substance: LORAZEPAM
     Indication: Product used for unknown indication
     Dosage: UNK
     Route: 065

REACTIONS (15)
  - Anxiety [Unknown]
  - Cognitive disorder [Unknown]
  - Fatigue [Unknown]
  - Gastrointestinal inflammation [Unknown]
  - Headache [Unknown]
  - Intestinal barrier dysfunction [Unknown]
  - Impaired work ability [Unknown]
  - Medical diet [Unknown]
  - Nausea [Unknown]
  - Panic reaction [Unknown]
  - Systemic candida [Unknown]
  - Vomiting [Unknown]
  - Weight decreased [Unknown]
  - Withdrawal syndrome [Unknown]
  - Wrong technique in product usage process [Unknown]
